FAERS Safety Report 8890986 (Version 5)
Quarter: 2014Q1

REPORT INFORMATION
  Report Type: Report from Study
  Country: US (occurrence: US)
  Receive Date: 20121107
  Receipt Date: 20140321
  Transmission Date: 20141002
  Serious: Yes (Hospitalization)
  Sender: FDA-Public Use
  Company Number: US-VERTEX PHARMACEUTICAL INC.-2012-021969

PATIENT
  Age: 12 Year
  Sex: Male

DRUGS (8)
  1. VX-770 [Suspect]
     Indication: CYSTIC FIBROSIS
     Dosage: 150 MG, Q12H
     Route: 048
     Dates: start: 20120227
  2. VX-770 [Suspect]
     Dosage: 150 MG, QD
     Route: 048
  3. ALBUTEROL [Concomitant]
  4. TOBI [Concomitant]
  5. CREON [Concomitant]
  6. HYPERTONIC SALINE SOLUTION [Concomitant]
  7. PULMOZYME [Concomitant]
  8. ZITHRAX [Concomitant]

REACTIONS (2)
  - Abdominal pain upper [Recovering/Resolving]
  - Abdominal discomfort [Recovering/Resolving]
